FAERS Safety Report 5456621-0 (Version None)
Quarter: 2007Q3

REPORT INFORMATION
  Report Type: 
  Country: None (occurrence: None)
  Receive Date: 20070917
  Receipt Date: 20070917
  Transmission Date: 20080115
  Serious: Yes (Hospitalization)
  Sender: FDA-Public Use
  Company Number: None

PATIENT
  Sex: Female
  Weight: 57 kg

DRUGS (2)
  1. FLUOROURACIL [Suspect]
     Dosage: 1520 MG
  2. MITOMYCIN [Suspect]
     Dosage: 15 MG

REACTIONS (12)
  - ABDOMINAL PAIN [None]
  - ATRIAL FIBRILLATION [None]
  - BACTERIAL INFECTION [None]
  - BLOOD CULTURE POSITIVE [None]
  - CONFUSIONAL STATE [None]
  - DEHYDRATION [None]
  - DIARRHOEA [None]
  - DISSEMINATED INTRAVASCULAR COAGULATION [None]
  - FAECAL INCONTINENCE [None]
  - FATIGUE [None]
  - ORAL INTAKE REDUCED [None]
  - PANCYTOPENIA [None]
